FAERS Safety Report 7644926-4 (Version None)
Quarter: 2011Q3

REPORT INFORMATION
  Report Type: 
  Country: None (occurrence: None)
  Receive Date: 20110729
  Receipt Date: 20110712
  Transmission Date: 20111222
  Serious: Yes (Hospitalization)
  Sender: FDA-Public Use
  Company Number: US-GLAXOSMITHKLINE-A0837832A

PATIENT
  Age: 60 Year
  Sex: Male
  Weight: 113.6 kg

DRUGS (1)
  1. AVANDIA [Suspect]
     Indication: DIABETES MELLITUS
     Dosage: 4MG PER DAY
     Route: 048
     Dates: start: 20011106, end: 20040201

REACTIONS (6)
  - CHEST PAIN [None]
  - MYOCARDIAL INFARCTION [None]
  - ASTHENIA [None]
  - ANXIETY [None]
  - EARLY RETIREMENT [None]
  - DEPRESSION [None]
